FAERS Safety Report 25064571 (Version 1)
Quarter: 2025Q1

REPORT INFORMATION
  Report Type: Spontaneous
  Country: US (occurrence: US)
  Receive Date: 20250311
  Receipt Date: 20250311
  Transmission Date: 20250408
  Serious: Yes (Death, Hospitalization)
  Sender: AMGEN
  Company Number: US-AMGEN-USASP2025043800

PATIENT
  Age: 7 Year
  Sex: Male

DRUGS (2)
  1. RITUXIMAB [Suspect]
     Active Substance: RITUXIMAB
     Indication: Post transplant lymphoproliferative disorder
     Route: 065
  2. TACROLIMUS [Concomitant]
     Active Substance: TACROLIMUS
     Indication: Immunosuppressant drug therapy

REACTIONS (4)
  - Death [Fatal]
  - Post transplant lymphoproliferative disorder [Unknown]
  - Intestinal obstruction [Unknown]
  - Off label use [Unknown]
